FAERS Safety Report 5715951-5 (Version None)
Quarter: 2008Q2

REPORT INFORMATION
  Report Type: 
  Country: None (occurrence: None)
  Receive Date: 20080424
  Receipt Date: 20080416
  Transmission Date: 20081010
  Serious: Yes (Other)
  Sender: FDA-Public Use
  Company Number: RU-TEVA-170435ISR

PATIENT
  Age: 58 Year
  Sex: Male

DRUGS (5)
  1. VINCRISTINE [Suspect]
     Indication: MULTIPLE MYELOMA
  2. METHYLPREDNISOLONE [Suspect]
     Indication: MULTIPLE MYELOMA
  3. MELPHALAN [Suspect]
     Indication: MULTIPLE MYELOMA
  4. PREDNISOLONE [Suspect]
     Indication: MULTIPLE MYELOMA
  5. CYCLOPHOSPHAMIDE [Suspect]
     Indication: MULTIPLE MYELOMA

REACTIONS (4)
  - MUCOSAL HAEMORRHAGE [None]
  - PANCYTOPENIA [None]
  - PAROXYSMAL NOCTURNAL HAEMOGLOBINURIA [None]
  - SKIN HAEMORRHAGE [None]
